FAERS Safety Report 5971305-8 (Version None)
Quarter: 2008Q4

REPORT INFORMATION
  Report Type: 
  Country: None (occurrence: None)
  Receive Date: 20081128
  Receipt Date: 20081117
  Transmission Date: 20090506
  Serious: Yes (Death, Life-Threatening, Other)
  Sender: FDA-Public Use
  Company Number: CN-PFIZER INC-2008098720

PATIENT
  Age: 69 Year
  Sex: Male

DRUGS (12)
  1. CEFOPERAZONE/SULBACTAM [Suspect]
     Indication: LUNG INFECTION
     Route: 042
     Dates: start: 20070723, end: 20070822
  2. MYCOPHENOLATE MOFETIL [Concomitant]
     Route: 048
     Dates: start: 20010401
  3. PREDNISONE TAB [Concomitant]
     Route: 048
     Dates: start: 20010401
  4. CYCLOSPROINE [Concomitant]
     Route: 048
     Dates: start: 20010401
  5. VALSARTAN [Concomitant]
     Route: 048
     Dates: start: 20010401
  6. SIMVASTATIN [Concomitant]
     Route: 048
     Dates: start: 20010401
  7. CILASTATIN SODIUM W/IMIPENEM [Concomitant]
     Route: 042
     Dates: start: 20070101
  8. VANCOMYCIN [Concomitant]
     Route: 042
     Dates: start: 20070101
  9. GANCICLOVIR [Concomitant]
     Route: 042
     Dates: start: 20070101
  10. PIPERACILLIN AND TAZOBACTAM [Concomitant]
     Route: 042
     Dates: start: 20070101
  11. LEVOFLOXACIN [Concomitant]
     Route: 042
     Dates: start: 20070101
  12. VORICONAZOLE [Concomitant]
     Route: 042
     Dates: start: 20070101

REACTIONS (3)
  - MULTI-ORGAN FAILURE [None]
  - PLATELET COUNT DECREASED [None]
  - PULMONARY HAEMORRHAGE [None]
